FAERS Safety Report 5681122-4 (Version None)
Quarter: 2008Q1

REPORT INFORMATION
  Report Type: 
  Country: None (occurrence: None)
  Receive Date: 20080325
  Receipt Date: 20080319
  Transmission Date: 20080703
  Serious: No
  Sender: FDA-Public Use
  Company Number: 18758

PATIENT
  Age: 63 Year
  Sex: Female
  Weight: 61.9 kg

DRUGS (1)
  1. CARBOPLATIN [Suspect]
     Indication: OVARIAN CANCER
     Dosage: 472 MG IV
     Route: 042
     Dates: start: 20071106, end: 20080311

REACTIONS (4)
  - DYSPHAGIA [None]
  - DYSPNOEA [None]
  - HYPERSENSITIVITY [None]
  - SENSATION OF FOREIGN BODY [None]
